FAERS Safety Report 9696457 (Version 1)
Quarter: 2013Q4

REPORT INFORMATION
  Report Type: Spontaneous
  Country: GB (occurrence: None)
  Receive Date: 20131115
  Receipt Date: 20131115
  Transmission Date: 20140711
  Serious: Yes (Other)
  Sender: FDA-Public Use
  Company Number: AUR-APL-2013-09497

PATIENT
  Age: 49 Year
  Sex: Female

DRUGS (13)
  1. CIPROFLOXACIN (CIPROFLOXACIN) [Suspect]
     Indication: INFECTION
     Dosage: 500 MG, 2 IN 1 D
     Route: 048
     Dates: start: 20131010, end: 20131017
  2. AMITRIPTYLINE [Concomitant]
  3. CARBAMAZEPINE [Concomitant]
  4. DIAZEPAM [Concomitant]
  5. GAVISCON [Concomitant]
  6. HYDROXYZINE [Concomitant]
  7. MACROGOL [Concomitant]
  8. METFORMIN [Concomitant]
  9. PANTOPRAZOLE [Concomitant]
  10. PARACETAMOL [Concomitant]
  11. PSEUDOEPHEDRINE [Concomitant]
  12. SULPIRIDE [Concomitant]
  13. TRAMADOL [Concomitant]

REACTIONS (2)
  - Psychotic disorder [None]
  - Suicidal ideation [None]
